FAERS Safety Report 19683959 (Version 2)
Quarter: 2022Q2

REPORT INFORMATION
  Report Type: Other
  Country: DE (occurrence: DE)
  Receive Date: 20210811
  Receipt Date: 20220420
  Transmission Date: 20220721
  Serious: Yes (Life-Threatening, Hospitalization, Congenital Anomaly)
  Sender: FDA-Public Use
  Company Number: DE-TEVA-2021-DE-1936361

PATIENT
  Sex: Male

DRUGS (11)
  1. RITUXIMAB [Suspect]
     Active Substance: RITUXIMAB
     Indication: Product used for unknown indication
     Dosage: 375 MG/M2 OVER 3-HOURS ON DAY 1 (REPEATED DAY 21, TOTAL OF 5 CYCLES)
     Route: 064
  2. ETOPOSIDE [Suspect]
     Active Substance: ETOPOSIDE
     Indication: Product used for unknown indication
     Dosage: 100 MG/M2 1-HOUR ON DAYS 2-4 (REPEATED DAY 21, TOTAL OF 5 CYCLES)
     Route: 064
  3. VINCRISTINE [Suspect]
     Active Substance: VINCRISTINE
     Indication: Product used for unknown indication
     Dosage: 2 MG ON DAY 2 (REPEATED DAY 21, TOTAL OF 5 CYCLES)
     Route: 064
  4. FILGRASTIM [Suspect]
     Active Substance: FILGRASTIM
     Indication: Product used for unknown indication
     Dosage: 10 MICROGRAM/KILOGRAM/DAY ON DAYS 6-11
     Route: 064
  5. CYCLOPHOSPHAMIDE [Suspect]
     Active Substance: CYCLOPHOSPHAMIDE
     Indication: Product used for unknown indication
     Dosage: 750 MG/M2 OVER 1-HOUR ON DAY 2 (REPEATED DAY 21, TOTAL OF 5 CYCLES)
     Route: 064
  6. DOXORUBICIN [Suspect]
     Active Substance: DOXORUBICIN
     Indication: Product used for unknown indication
     Dosage: 50 MG/M2 OVER 30-MINUTES ON DAY 2 (REPEATED DAY 21, TOTAL OF 5 CYCLES)
     Route: 064
  7. PREDNISOLONE [Suspect]
     Active Substance: PREDNISOLONE
     Indication: Product used for unknown indication
     Dosage: 100 MG ORALLY ON DAYS 2-5 (REPEATED DAY 21, TOTAL OF 5 CYCLES)
     Route: 064
  8. DEXAMETHASONE [Suspect]
     Active Substance: DEXAMETHASONE
     Indication: Product used for unknown indication
     Dosage: 4 MG ON DAYS 2 AND 6
     Route: 064
  9. MESNA [Suspect]
     Active Substance: MESNA
     Indication: Product used for unknown indication
     Dosage: 200 MG/M2 AT 0, 4 AND 8 HOURS AFTER CPA DAY 2
     Route: 064
  10. CYTARABINE [Concomitant]
     Active Substance: CYTARABINE
     Dosage: 150 MG/M2 OVER 1-HOUR EVERY 12 HOURS ON DAYS 2-6 (REPEATED DAY 21, TOTAL OF 5 CYCLES)
     Route: 064
  11. CYTARABINE [Concomitant]
     Active Substance: CYTARABINE
     Dosage: 40 MG ON DAYS 2 AND 6
     Route: 064

REACTIONS (15)
  - Small for dates baby [Unknown]
  - Plasma cells decreased [Not Recovered/Not Resolved]
  - Combined immunodeficiency [Recovered/Resolved]
  - Bacterial infection [Recovered/Resolved]
  - Foetal growth restriction [Recovered/Resolved]
  - Hypogammaglobulinaemia [Recovered/Resolved]
  - Foetal exposure during pregnancy [Unknown]
  - Premature baby [Unknown]
  - Bacterial infection [Recovered/Resolved]
  - Foetal growth restriction [Unknown]
  - Hypogammaglobulinaemia [Not Recovered/Not Resolved]
  - Infection [Recovered/Resolved]
  - Plasmablast count increased [Unknown]
  - Vaccine induced antibody absent [Unknown]
  - B-lymphocyte count decreased [Not Recovered/Not Resolved]
